FAERS Safety Report 5885390-5 (Version None)
Quarter: 2008Q3

REPORT INFORMATION
  Report Type: 
  Country: None (occurrence: None)
  Receive Date: 20080916
  Receipt Date: 20080905
  Transmission Date: 20090109
  Serious: Yes (Other)
  Sender: FDA-Public Use
  Company Number: GB-PFIZER INC-2008075703

PATIENT
  Age: 31 Year
  Sex: Female
  Weight: 67.3 kg

DRUGS (2)
  1. CHANTIX [Suspect]
     Indication: SMOKING CESSATION THERAPY
     Route: 048
     Dates: start: 20080702, end: 20080727
  2. ENGERIX-B [Concomitant]
     Dates: end: 20080612

REACTIONS (2)
  - DYSPEPSIA [None]
  - HAEMATEMESIS [None]
